FAERS Safety Report 10169343 (Version 1)
Quarter: 2014Q2

REPORT INFORMATION
  Report Type: Spontaneous
  Country: US (occurrence: US)
  Receive Date: 20140513
  Receipt Date: 20140513
  Transmission Date: 20141212
  Serious: No
  Sender: FDA-Public Use
  Company Number: US-PFIZER INC-2014125713

PATIENT
  Age: 30 Year
  Sex: Female

DRUGS (1)
  1. ADVIL PM [Suspect]
     Dosage: UNK, A FEW TIMES PER YEAR

REACTIONS (3)
  - Malaise [Unknown]
  - Dyspepsia [Unknown]
  - Insomnia [Unknown]
